FAERS Safety Report 19749608 (Version 1)
Quarter: 2021Q3

REPORT INFORMATION
  Report Type: Spontaneous
  Country: US (occurrence: US)
  Receive Date: 20210824
  Receipt Date: 20210824
  Transmission Date: 20211014
  Serious: No
  Sender: FDA-Public Use
  Company Number: None

PATIENT
  Age: 56 Year
  Sex: Male
  Weight: 254 kg

DRUGS (1)
  1. ATORVASTATIN (ASTORVASTATIIN CA 80MG TAB) [Suspect]
     Active Substance: ATORVASTATIN CALCIUM
     Indication: HYPERLIPIDAEMIA
     Route: 048
     Dates: start: 20200212, end: 20200318

REACTIONS (4)
  - Hepatic enzyme increased [None]
  - Myalgia [None]
  - Rhabdomyolysis [None]
  - Diarrhoea [None]

NARRATIVE: CASE EVENT DATE: 20200318
